FAERS Safety Report 15792465 (Version 1)
Quarter: 2019Q1

REPORT INFORMATION
  Report Type: Spontaneous
  Country: DE (occurrence: DE)
  Receive Date: 20190107
  Receipt Date: 20190107
  Transmission Date: 20190417
  Serious: Yes (Other)
  Sender: FDA-Public Use
  Company Number: DE-TEVA-2019-DE-994438

PATIENT
  Age: 4 Decade
  Sex: Female
  Weight: 59 kg

DRUGS (3)
  1. MCP STADA 10 MG TABLETTEN [Suspect]
     Active Substance: METOCLOPRAMIDE
     Route: 065
  2. MCP AL RETARD [Suspect]
     Active Substance: METOCLOPRAMIDE
     Route: 065
  3. MCP-CT 30 MG RETARDKAPSELN [Suspect]
     Active Substance: METOCLOPRAMIDE
     Route: 065

REACTIONS (5)
  - Panic attack [Unknown]
  - Palpitations [Unknown]
  - Restlessness [Unknown]
  - Tongue paralysis [Unknown]
  - Dyspnoea [Unknown]
